FAERS Safety Report 14126332 (Version 4)
Quarter: 2018Q2

REPORT INFORMATION
  Report Type: Not Available
  Country: US (occurrence: US)
  Receive Date: 20171025
  Receipt Date: 20180518
  Transmission Date: 20180711
  Serious: No
  Sender: FDA-Public Use
  Company Number: US-NEUROCRINE BIOSCIENCES INC.-2017NBI01131

PATIENT
  Age: 36 Year
  Sex: Female

DRUGS (5)
  1. INGREZZA [Suspect]
     Active Substance: VALBENAZINE
     Indication: TARDIVE DYSKINESIA
     Route: 048
     Dates: start: 20171025, end: 20171031
  2. LITHIUM. [Concomitant]
     Active Substance: LITHIUM
     Route: 048
     Dates: start: 2014
  3. LATUDA [Concomitant]
     Active Substance: LURASIDONE HYDROCHLORIDE
     Route: 048
     Dates: start: 2014
  4. INGREZZA [Suspect]
     Active Substance: VALBENAZINE
     Route: 048
     Dates: start: 20171101, end: 20171208
  5. ZOLOFT [Concomitant]
     Active Substance: SERTRALINE HYDROCHLORIDE
     Route: 048
     Dates: start: 2015

REACTIONS (5)
  - Tremor [Recovered/Resolved]
  - Drooling [Recovered/Resolved]
  - Somnolence [Recovered/Resolved]
  - Hypokinesia [Recovered/Resolved]
  - Salivary hypersecretion [Recovered/Resolved]

NARRATIVE: CASE EVENT DATE: 20170907
